FAERS Safety Report 5547240-6 (Version None)
Quarter: 2007Q4

REPORT INFORMATION
  Report Type: 
  Country: None (occurrence: None)
  Receive Date: 20071211
  Receipt Date: 20071205
  Transmission Date: 20080405
  Serious: Yes (Death, Hospitalization)
  Sender: FDA-Public Use
  Company Number: A0697534A

PATIENT
  Age: 51 Year
  Sex: Female

DRUGS (5)
  1. WELLBUTRIN XL [Suspect]
     Indication: DRUG USE FOR UNKNOWN INDICATION
     Dosage: 150MG PER DAY
     Route: 048
     Dates: start: 20030101, end: 20070901
  2. ABILIFY [Concomitant]
  3. CLONAZEPAM [Concomitant]
  4. EFFEXOR XR [Concomitant]
  5. RISPERDAL [Concomitant]

REACTIONS (3)
  - COMA [None]
  - DELUSION [None]
  - DISEASE PROGRESSION [None]
